FAERS Safety Report 8223798-3 (Version None)
Quarter: 2012Q1

REPORT INFORMATION
  Report Type: 
  Country: None (occurrence: None)
  Receive Date: 20120321
  Receipt Date: 20120321
  Transmission Date: 20120608
  Serious: Yes (Life-Threatening, Other)
  Sender: FDA-Public Use
  Company Number: None

PATIENT
  Age: 45 Year
  Sex: Female
  Weight: 68.038 kg

DRUGS (1)
  1. TAXOTERE [Suspect]

REACTIONS (10)
  - OEDEMA PERIPHERAL [None]
  - RASH [None]
  - OROPHARYNGEAL PAIN [None]
  - EAR PAIN [None]
  - PAIN IN EXTREMITY [None]
  - NEUROPATHY PERIPHERAL [None]
  - WHITE BLOOD CELL COUNT DECREASED [None]
  - BACK PAIN [None]
  - PAIN [None]
  - ABASIA [None]
